FAERS Safety Report 4492976-1 (Version None)
Quarter: 2004Q4

REPORT INFORMATION
  Report Type: 
  Country: None (occurrence: None)
  Receive Date: 20041102
  Receipt Date: 20041020
  Transmission Date: 20050328
  Serious: Yes (Hospitalization)
  Sender: FDA-Public Use
  Company Number: 25498

PATIENT
  Age: 68 Year
  Sex: Male

DRUGS (3)
  1. FLECAINIDE ACETATE [Suspect]
     Dosage: 1 DOSAGE FORMS  (1 DOSAGE FORMS, 1 IN 1 DAY(S))  , ORAL
     Route: 048
     Dates: end: 20041004
  2. DIAMICRON (GLICLAZIDE) [Concomitant]
  3. ASPIRIN [Concomitant]

REACTIONS (17)
  - ATRIOVENTRICULAR EXTRASYSTOLES [None]
  - BLOOD CREATINE PHOSPHOKINASE INCREASED [None]
  - CIRCULATORY COLLAPSE [None]
  - DILATATION VENTRICULAR [None]
  - ELECTROCARDIOGRAM QRS COMPLEX PROLONGED [None]
  - FALL [None]
  - HYPERTENSION [None]
  - LOSS OF CONSCIOUSNESS [None]
  - MITRAL VALVE INCOMPETENCE [None]
  - PCO2 DECREASED [None]
  - PO2 DECREASED [None]
  - PULSE ABNORMAL [None]
  - SUPRAVENTRICULAR EXTRASYSTOLES [None]
  - SYNCOPE [None]
  - VENTRICULAR ARRHYTHMIA [None]
  - VENTRICULAR HYPOKINESIA [None]
  - VENTRICULAR TACHYCARDIA [None]
